FAERS Safety Report 11214607 (Version 3)
Quarter: 2015Q3

REPORT INFORMATION
  Report Type: Spontaneous
  Country: BR (occurrence: BR)
  Receive Date: 20150624
  Receipt Date: 20150708
  Transmission Date: 20151125
  Serious: Yes (Other)
  Sender: FDA-Public Use
  Company Number: PHHY2015BR075847

PATIENT
  Sex: Female
  Weight: 64 kg

DRUGS (7)
  1. DIOVAN [Suspect]
     Active Substance: VALSARTAN
     Indication: HYPERTENSION
     Dosage: 2 DF, QD
     Route: 048
  2. SEROQUEL [Suspect]
     Active Substance: QUETIAPINE FUMARATE
     Indication: PRODUCT USED FOR UNKNOWN INDICATION
     Route: 065
  3. OLCADIL [Suspect]
     Active Substance: CLOXAZOLAM
     Indication: DEPRESSION
     Dosage: 1 DF, BID (IN THE MORNING AND AT NIGHT)
     Route: 048
  4. SUSTRATE [Suspect]
     Active Substance: PROPATYL NITRATE
     Indication: PRODUCT USED FOR UNKNOWN INDICATION
     Route: 065
  5. DIOVAN [Suspect]
     Active Substance: VALSARTAN
     Indication: CARDIAC DISORDER
  6. PANTOPRAZOLE [Suspect]
     Active Substance: PANTOPRAZOLE SODIUM
     Indication: PRODUCT USED FOR UNKNOWN INDICATION
     Route: 065
  7. DRAMIN B-6 [Suspect]
     Active Substance: DIMENHYDRINATE\PYRIDOXINE HYDROCHLORIDE
     Indication: PRODUCT USED FOR UNKNOWN INDICATION
     Route: 065

REACTIONS (13)
  - Blindness [Not Recovered/Not Resolved]
  - Myocardial infarction [Not Recovered/Not Resolved]
  - Hypertension [Not Recovered/Not Resolved]
  - Dysphagia [Unknown]
  - Infarction [Recovered/Resolved]
  - Retinal disorder [Not Recovered/Not Resolved]
  - Angina pectoris [Not Recovered/Not Resolved]
  - Pharyngitis [Not Recovered/Not Resolved]
  - Rheumatic fever [Not Recovered/Not Resolved]
  - Hepatic steatosis [Not Recovered/Not Resolved]
  - Oropharyngeal pain [Not Recovered/Not Resolved]
  - Nervousness [Unknown]
  - Influenza [Unknown]

NARRATIVE: CASE EVENT DATE: 2005
